FAERS Safety Report 13549317 (Version 1)
Quarter: 2017Q2

REPORT INFORMATION
  Report Type: Spontaneous
  Country: US (occurrence: US)
  Receive Date: 20170516
  Receipt Date: 20170516
  Transmission Date: 20170830
  Serious: No
  Sender: FDA-Public Use
  Company Number: US-ORPHAN EUROPE-2020794

PATIENT
  Age: 18 Year
  Sex: Male
  Weight: 72 kg

DRUGS (11)
  1. COENZYME Q-GEL [Concomitant]
  2. CARBAGLU [Suspect]
     Active Substance: CARGLUMIC ACID
     Indication: HYPERAMMONAEMIA
     Route: 048
     Dates: start: 201606
  3. RECTAL KIT [Concomitant]
  4. ASPIRIN. [Concomitant]
     Active Substance: ASPIRIN
  5. LEVOCARNITINE. [Concomitant]
     Active Substance: LEVOCARNITINE
  6. BIOTIN [Concomitant]
     Active Substance: BIOTIN
  7. CARVEDILOL. [Concomitant]
     Active Substance: CARVEDILOL
  8. DIASTAT ACUDIAL [Concomitant]
     Active Substance: DIAZEPAM
  9. PHENOBARBITAL. [Concomitant]
     Active Substance: PHENOBARBITAL
  10. SODIUM BICARBONATE. [Concomitant]
     Active Substance: SODIUM BICARBONATE
  11. MIRALAX [Concomitant]
     Active Substance: POLYETHYLENE GLYCOL 3350

REACTIONS (2)
  - Aspartate aminotransferase increased [Recovered/Resolved]
  - Alanine aminotransferase increased [Recovered/Resolved]

NARRATIVE: CASE EVENT DATE: 20160714
